FAERS Safety Report 14945290 (Version 1)
Quarter: 2018Q2

REPORT INFORMATION
  Report Type: Spontaneous
  Country: US (occurrence: US)
  Receive Date: 20180529
  Receipt Date: 20180529
  Transmission Date: 20180711
  Serious: Yes (Other)
  Sender: FDA-Public Use
  Company Number: US-BIODELIVERY SCIENCES INTERNATIONAL-2017BDSI0210

PATIENT
  Age: 62 Year
  Sex: Female
  Weight: 55.39 kg

DRUGS (1)
  1. BUPRENORPHINE. [Suspect]
     Active Substance: BUPRENORPHINE
     Indication: PAIN
     Route: 002
     Dates: start: 201707

REACTIONS (2)
  - Drug withdrawal syndrome [Unknown]
  - Product availability issue [Unknown]

NARRATIVE: CASE EVENT DATE: 20171013
